FAERS Safety Report 5468640-9 (Version None)
Quarter: 2007Q3

REPORT INFORMATION
  Report Type: 
  Country: None (occurrence: None)
  Receive Date: 20070921
  Receipt Date: 20070911
  Transmission Date: 20080115
  Serious: Yes (Death, Life-Threatening)
  Sender: FDA-Public Use
  Company Number: 2007P1000650

PATIENT
  Age: 60 Year
  Sex: Male

DRUGS (9)
  1. BUSULFAN               (BUSULFAN) [Suspect]
     Indication: STEM CELL TRANSPLANT
     Dosage: 27 ML; QD; IV; 36 ML; QD; IV; 9 ML; QD; IV
     Route: 042
     Dates: start: 20070512, end: 20070512
  2. BUSULFAN               (BUSULFAN) [Suspect]
     Indication: STEM CELL TRANSPLANT
     Dosage: 27 ML; QD; IV; 36 ML; QD; IV; 9 ML; QD; IV
     Route: 042
     Dates: start: 20070513, end: 20070513
  3. BUSULFAN               (BUSULFAN) [Suspect]
     Indication: STEM CELL TRANSPLANT
     Dosage: 27 ML; QD; IV; 36 ML; QD; IV; 9 ML; QD; IV
     Route: 042
     Dates: start: 20070514, end: 20070514
  4. NEUPOGEN [Concomitant]
  5. FLUDARABINE PHOSPHATE [Concomitant]
  6. CYTARABINE [Concomitant]
  7. VALPROATE SODIUM [Concomitant]
  8. METHOTREXATE [Concomitant]
  9. TACROLIMUS [Concomitant]

REACTIONS (21)
  - BLOOD CREATININE INCREASED [None]
  - BLOOD CULTURE POSITIVE [None]
  - BLOOD SODIUM INCREASED [None]
  - BONE MARROW TRANSPLANT [None]
  - DECREASED APPETITE [None]
  - DIARRHOEA [None]
  - ESCHERICHIA INFECTION [None]
  - FEBRILE NEUTROPENIA [None]
  - HAEMODIALYSIS [None]
  - HEPATIC ENZYME INCREASED [None]
  - HYPERBILIRUBINAEMIA [None]
  - INFECTION [None]
  - MALAISE [None]
  - POOR PERIPHERAL CIRCULATION [None]
  - RED BLOOD CELL COUNT DECREASED [None]
  - RENAL IMPAIRMENT [None]
  - RHABDOMYOLYSIS [None]
  - SEPTIC SHOCK [None]
  - THROMBOTIC MICROANGIOPATHY [None]
  - TRANSAMINASES INCREASED [None]
  - TRANSPLANT REJECTION [None]
